FAERS Safety Report 4413974-X (Version None)
Quarter: 2004Q3

REPORT INFORMATION
  Report Type: 
  Country: None (occurrence: None)
  Receive Date: 20040728
  Receipt Date: 20040719
  Transmission Date: 20050211
  Serious: Yes (Other)
  Sender: FDA-Public Use
  Company Number: 2004040632

PATIENT
  Age: 31 Year
  Sex: Female
  Weight: 66 kg

DRUGS (1)
  1. ZITHROMAX [Suspect]
     Indication: SCARLET FEVER
     Dosage: 500 MG (500 MG, 1 IN 1 D), ORAL
     Route: 048
     Dates: start: 20040519, end: 20040521

REACTIONS (1)
  - RHEUMATIC FEVER [None]
